FAERS Safety Report 19061584 (Version 6)
Quarter: 2023Q2

REPORT INFORMATION
  Report Type: Report from Study
  Country: KW (occurrence: KW)
  Receive Date: 20210326
  Receipt Date: 20230411
  Transmission Date: 20230722
  Serious: Yes (Other)
  Sender: FDA-Public Use
  Company Number: NVSC2020KW275147

PATIENT
  Age: 45 Year
  Sex: Female

DRUGS (6)
  1. KISQALI [Suspect]
     Active Substance: RIBOCICLIB
     Indication: Breast cancer metastatic
     Dosage: 600 MG, QD
     Route: 048
     Dates: start: 20200908
  2. KISQALI [Suspect]
     Active Substance: RIBOCICLIB
     Dosage: 400 MG, QD
     Route: 048
  3. KISQALI [Suspect]
     Active Substance: RIBOCICLIB
     Dosage: 400 MG, QD
     Route: 048
     Dates: start: 20200908
  4. FEMARA [Suspect]
     Active Substance: LETROZOLE
     Indication: Product used for unknown indication
     Dosage: 1 DOSAGE FORM, QD
     Route: 065
     Dates: start: 202009
  5. ANGELIQ [Concomitant]
     Active Substance: DROSPIRENONE\ESTRADIOL
     Indication: Contraception
     Dosage: UNK (USING FROM FROM 13 YEARS)
     Route: 065
     Dates: start: 2007
  6. NEURONTIN [Concomitant]
     Active Substance: GABAPENTIN
     Indication: Product used for unknown indication
     Dosage: 300 MG, BID
     Route: 065

REACTIONS (22)
  - COVID-19 [Recovered/Resolved]
  - Pain [Recovered/Resolved]
  - Body temperature increased [Recovered/Resolved]
  - Nasal discomfort [Unknown]
  - Throat irritation [Unknown]
  - Cough [Unknown]
  - Rhinorrhoea [Unknown]
  - Weight decreased [Not Recovered/Not Resolved]
  - Neutropenia [Not Recovered/Not Resolved]
  - Flatulence [Not Recovered/Not Resolved]
  - Head discomfort [Recovered/Resolved]
  - Hyperhidrosis [Recovered/Resolved]
  - Vomiting [Unknown]
  - Nausea [Recovered/Resolved]
  - Decreased appetite [Recovered/Resolved]
  - Decreased appetite [Unknown]
  - Neutrophil count decreased [Unknown]
  - Dyspepsia [Recovered/Resolved]
  - Constipation [Not Recovered/Not Resolved]
  - Dysgeusia [Not Recovered/Not Resolved]
  - Dyspnoea [Recovered/Resolved]
  - Dizziness [Recovered/Resolved]

NARRATIVE: CASE EVENT DATE: 20200101
